FAERS Safety Report 7914371-2 (Version None)
Quarter: 2011Q4

REPORT INFORMATION
  Report Type: 
  Country: None (occurrence: None)
  Receive Date: 20111115
  Receipt Date: 20111102
  Transmission Date: 20120403
  Serious: Yes (Other)
  Sender: FDA-Public Use
  Company Number: US-ELI_LILLY_AND_COMPANY-US201111004008

PATIENT
  Sex: Female

DRUGS (1)
  1. FORTEO [Suspect]
     Indication: BONE DISORDER
     Dosage: 20 UG, UNK
     Dates: start: 20070101

REACTIONS (6)
  - LOWER LIMB FRACTURE [None]
  - ARTHROPATHY [None]
  - DENTAL CARIES [None]
  - TOOTH FRACTURE [None]
  - RHEUMATOID ARTHRITIS [None]
  - OFF LABEL USE [None]
